FAERS Safety Report 15245878 (Version 1)
Quarter: 2018Q3

REPORT INFORMATION
  Report Type: Report from Study
  Country: DE (occurrence: DE)
  Receive Date: 20180806
  Receipt Date: 20180806
  Transmission Date: 20181010
  Serious: Yes (Hospitalization)
  Sender: FDA-Public Use
  Company Number: DE-TEVA-2018-DE-935576

PATIENT
  Age: 69 Year
  Sex: Female
  Weight: 59 kg

DRUGS (22)
  1. CARBOPLATIN. [Suspect]
     Active Substance: CARBOPLATIN
     Indication: NON-SMALL CELL LUNG CANCER
     Dosage: 6 MG/MIN/ML
     Route: 041
     Dates: start: 20171204
  2. CLEXANE [Concomitant]
     Active Substance: ENOXAPARIN SODIUM
     Indication: PROPHYLAXIS
     Dosage: .4 ML DAILY; .4 MILLILITER
     Route: 058
     Dates: start: 20180103, end: 20180105
  3. FLUTIDE [Concomitant]
     Active Substance: FLUTICASONE PROPIONATE
     Indication: ASTHMA
     Dosage: 1 APPLICATION TWICE DAILY
     Route: 045
  4. ABRAXANE [Suspect]
     Active Substance: PACLITAXEL
     Indication: NON-SMALL CELL LUNG CANCER
     Route: 041
     Dates: start: 20171204, end: 20171211
  5. SYMBICORT [Concomitant]
     Active Substance: BUDESONIDE\FORMOTEROL FUMARATE DIHYDRATE
     Indication: ASTHMA
     Dosage: 8 DOSAGE FORMS DAILY; 2 PUFFS TWICE DAILY
     Route: 055
  6. SELEN [Concomitant]
     Active Substance: SELENIUM
     Dosage: 500 MICROGRAM DAILY; 500 MICROGRAM
     Route: 048
     Dates: start: 20171205, end: 20171205
  7. LUMIGAN [Concomitant]
     Active Substance: BIMATOPROST
     Indication: GLAUCOMA
     Route: 061
  8. PANTOZOL [Concomitant]
     Active Substance: PANTOPRAZOLE SODIUM
     Indication: PROPHYLAXIS
     Dosage: 40 MILLIGRAM DAILY; 40 MILLIGRAM
     Route: 048
  9. PREDNISOLONE. [Concomitant]
     Active Substance: PREDNISOLONE
     Indication: ASTHMA
     Route: 048
     Dates: start: 20180103
  10. CLONID?OPHTAL [Concomitant]
     Active Substance: CLONIDINE HYDROCHLORIDE
     Indication: GLAUCOMA
     Route: 061
  11. BETHAISODONA [Concomitant]
     Indication: PROPHYLAXIS
     Dosage: 3 DOSAGE FORMS DAILY; 3 DOSAGE FORMS
     Route: 048
     Dates: start: 20180103
  12. MONTELUCAST [Concomitant]
     Active Substance: MONTELUKAST SODIUM
     Indication: ASTHMA
     Dosage: 10 MILLIGRAM DAILY; 10 MILLIGRAM
     Route: 048
  13. XOLAIR [Concomitant]
     Active Substance: OMALIZUMAB
     Indication: ASTHMA
     Dosage: .1429 DOSAGE FORMS
     Route: 058
  14. BRETARIS GENUAIR [Concomitant]
     Active Substance: ACLIDINIUM BROMIDE
     Indication: CHRONIC OBSTRUCTIVE PULMONARY DISEASE
     Dosage: 2 DOSAGE FORMS DAILY; 1 PUFFS TWICE DAILY
     Route: 055
  15. VINGANTOL OIL [Concomitant]
     Indication: VITAMIN D DEFICIENCY
     Route: 048
  16. ABRAXANE [Suspect]
     Active Substance: PACLITAXEL
     Route: 041
  17. AZOPT [Concomitant]
     Active Substance: BRINZOLAMIDE
     Indication: GLAUCOMA
     Route: 061
  18. SOLEDUM FORTE [Concomitant]
     Indication: CHRONIC OBSTRUCTIVE PULMONARY DISEASE
     Dosage: 3 DOSAGE FORMS DAILY; 3 TABLET
     Route: 048
     Dates: start: 20171103
  19. DEKRISTOL 2000 [Concomitant]
     Indication: VITAMIN D DEFICIENCY
     Dosage: 2000 IU (INTERNATIONAL UNIT) DAILY; 2000 IU (INTERNATIONAL UNIT)
     Route: 048
     Dates: start: 20171204, end: 20171205
  20. PLAVIX [Concomitant]
     Active Substance: CLOPIDOGREL BISULFATE
     Indication: PERIPHERAL ARTERIAL OCCLUSIVE DISEASE
     Dosage: 75 MILLIGRAM DAILY; 75 MILLIGRAM
     Route: 048
     Dates: start: 20171104
  21. AMPHOMORONAL [Concomitant]
     Indication: PROPHYLAXIS
     Dosage: 3 DOSAGE FORMS DAILY; 3 DOSAGE FORMS
     Route: 048
     Dates: start: 20180103
  22. SELEN [Concomitant]
     Active Substance: SELENIUM
     Indication: SELENIUM DEFICIENCY
     Dosage: 1000 MICROGRAM DAILY; 1000 MICROGRAM
     Route: 048
     Dates: start: 20171204, end: 20171204

REACTIONS (2)
  - Pneumonia [Recovered/Resolved]
  - Anaemia [Not Recovered/Not Resolved]

NARRATIVE: CASE EVENT DATE: 20171218
